FAERS Safety Report 19297351 (Version 3)
Quarter: 2021Q2

REPORT INFORMATION
  Report Type: Report from Study
  Country: AU (occurrence: AU)
  Receive Date: 20210524
  Receipt Date: 20210611
  Transmission Date: 20210717
  Serious: Yes (Hospitalization)
  Sender: FDA-Public Use
  Company Number: AU-SECURA BIO, INC.-2021-SECUR-AU003313

PATIENT
  Age: 2 Year
  Sex: Male
  Weight: 14 kg

DRUGS (8)
  1. LBH589 [Suspect]
     Active Substance: PANOBINOSTAT
     Indication: ATYPICAL TERATOID/RHABDOID TUMOUR OF CNS
     Dosage: 8 MG/M2 (CYCLE 1 TO CYCLE 5)
     Route: 048
     Dates: start: 20200603, end: 20201009
  2. LBH589 [Suspect]
     Active Substance: PANOBINOSTAT
     Dosage: 6 MG/M2 (CYCLE 5 TO 8)
     Route: 048
     Dates: start: 20201015
  3. LBH589 [Suspect]
     Active Substance: PANOBINOSTAT
     Dosage: 4 MG/M2 (CYCLE 8 TO 12)
     Route: 048
     Dates: start: 20201216
  4. CYCLIZINE [Concomitant]
     Active Substance: CYCLIZINE
     Indication: PROPHYLAXIS OF NAUSEA AND VOMITING
     Dosage: 10 MG, PRN
     Route: 048
     Dates: start: 20200409
  5. ONDANSETRON [Concomitant]
     Active Substance: ONDANSETRON
     Indication: PROPHYLAXIS OF NAUSEA AND VOMITING
     Dosage: 2 MG, PRN
     Route: 048
     Dates: start: 20200508
  6. PARACETAMOL [Concomitant]
     Active Substance: ACETAMINOPHEN
     Indication: PYREXIA
     Dosage: 15 MG/KG
     Route: 065
     Dates: start: 20200413
  7. PARACETAMOL [Concomitant]
     Active Substance: ACETAMINOPHEN
     Indication: PAIN
  8. BACTRIM [Concomitant]
     Active Substance: SULFAMETHOXAZOLE\TRIMETHOPRIM
     Indication: INFECTION PROPHYLAXIS
     Dosage: 3 ML
     Route: 065
     Dates: start: 20200509

REACTIONS (1)
  - Upper respiratory tract infection [Recovering/Resolving]

NARRATIVE: CASE EVENT DATE: 20210514
